FAERS Safety Report 12950105 (Version 1)
Quarter: 2016Q4

REPORT INFORMATION
  Report Type: Spontaneous
  Country: FR (occurrence: FR)
  Receive Date: 20161117
  Receipt Date: 20161117
  Transmission Date: 20170207
  Serious: Yes (Hospitalization)
  Sender: FDA-Public Use
  Company Number: FR-PFIZER INC-2016523047

PATIENT
  Age: 94 Year
  Sex: Female

DRUGS (8)
  1. BECILAN [Concomitant]
     Active Substance: PYRIDOXINE
     Dosage: 250 MG, 2X/DAY
     Route: 048
  2. LOXAPAC /00401801/ [Concomitant]
     Active Substance: LOXAPINE SUCCINATE
     Dosage: 10 GTT, 1X/DAY
     Route: 048
  3. LYRICA [Suspect]
     Active Substance: PREGABALIN
     Indication: ANXIETY
     Dosage: 25 MG, 3X/DAY
     Route: 048
     Dates: start: 20160707, end: 20160707
  4. BISOPROLOL FUMARATE. [Concomitant]
     Active Substance: BISOPROLOL FUMARATE
     Dosage: 1.25 MG, 1X/DAY
     Route: 048
  5. SERETIDE [Concomitant]
     Active Substance: FLUTICASONE PROPIONATE\SALMETEROL XINAFOATE
     Dosage: 2 DF, 2X/DAY
     Route: 055
  6. IZALGI [Suspect]
     Active Substance: ACETAMINOPHEN\OPIUM
     Indication: PAIN
     Dosage: 1 DF, 2X/DAY
     Route: 048
     Dates: start: 20160707, end: 20160707
  7. SERESTA [Concomitant]
     Active Substance: OXAZEPAM
     Dosage: 10 MG, 3X/DAY
     Route: 048
  8. BENERVA [Concomitant]
     Active Substance: THIAMINE
     Indication: VITAMIN B1 DEFICIENCY
     Dosage: 250 MG, 2X/DAY
     Route: 048

REACTIONS (5)
  - Pyelonephritis acute [Recovered/Resolved]
  - Somnolence [Recovered/Resolved]
  - Apathy [Recovered/Resolved]
  - General physical health deterioration [Recovered/Resolved]
  - Acute kidney injury [Recovered/Resolved]

NARRATIVE: CASE EVENT DATE: 20160707
